FAERS Safety Report 4523695-0 (Version None)
Quarter: 2004Q4

REPORT INFORMATION
  Report Type: 
  Country: None (occurrence: None)
  Receive Date: 20041210
  Receipt Date: 20041108
  Transmission Date: 20050328
  Serious: Yes (Hospitalization)
  Sender: FDA-Public Use
  Company Number: JP-GLAXOSMITHKLINE-B0351245A

PATIENT
  Age: 67 Year
  Sex: Female
  Weight: 41.5 kg

DRUGS (6)
  1. ZOVIRAX [Suspect]
     Indication: HERPES ZOSTER
     Dosage: 200MG VARIABLE DOSE
     Route: 048
     Dates: start: 20041015, end: 20041016
  2. BAYASPIRIN [Concomitant]
     Indication: VASCULAR SHUNT
     Dosage: 100MG PER DAY
     Route: 048
  3. CALTAN [Concomitant]
     Indication: HYPERPHOSPHATAEMIA
     Dosage: 500MG THREE TIMES PER DAY
     Route: 048
  4. ARTIST [Concomitant]
     Indication: HYPERTENSION
     Dosage: 10MG PER DAY
     Route: 048
  5. SELBEX [Concomitant]
     Indication: GASTRITIS
     Dosage: 50MG THREE TIMES PER DAY
     Route: 048
  6. DAIO-KANZO-TO [Concomitant]
     Indication: CONSTIPATION
     Dosage: 2.5G PER DAY
     Route: 048

REACTIONS (1)
  - DYSLALIA [None]
